FAERS Safety Report 4644714-7 (Version None)
Quarter: 2005Q2

REPORT INFORMATION
  Report Type: 
  Country: None (occurrence: None)
  Receive Date: 20050426
  Receipt Date: 20050419
  Transmission Date: 20051028
  Serious: Yes (Other)
  Sender: FDA-Public Use
  Company Number: US-JNJFOC-20050204933

PATIENT
  Sex: Male
  Weight: 23.36 kg

DRUGS (2)
  1. CONCERTA [Suspect]
     Indication: DYSKINESIA
     Route: 049
     Dates: start: 20050211, end: 20050214
  2. CONCERTA [Suspect]
     Route: 049
     Dates: start: 20050211, end: 20050214

REACTIONS (3)
  - AGGRESSION [None]
  - AGITATION [None]
  - HALLUCINATION [None]
